FAERS Safety Report 10265796 (Version 5)
Quarter: 2015Q1

REPORT INFORMATION
  Report Type: Spontaneous
  Country: US (occurrence: US)
  Receive Date: 20140627
  Receipt Date: 20150330
  Transmission Date: 20150720
  Serious: Yes (Hospitalization, Other)
  Sender: FDA-Public Use
  Company Number: US-GLAXOSMITHKLINE-A1078076A

PATIENT
  Sex: Female

DRUGS (10)
  1. FLOVENT [Suspect]
     Active Substance: FLUTICASONE PROPIONATE
     Indication: LUNG DISORDER
     Dosage: 2 PUFF(S), BID
  2. FLOVENT [Suspect]
     Active Substance: FLUTICASONE PROPIONATE
     Indication: CHRONIC OBSTRUCTIVE PULMONARY DISEASE
     Dosage: 2 PUFF(S), BID
     Route: 055
     Dates: start: 201210
  3. VENTOLIN HFA [Suspect]
     Active Substance: ALBUTEROL SULFATE
     Indication: LUNG DISORDER
     Dosage: UNK, PRN
     Route: 055
     Dates: start: 201210
  4. HYDROCODONE [Concomitant]
     Active Substance: HYDROCODONE
  5. FOLIC ACID. [Concomitant]
     Active Substance: FOLIC ACID
  6. VITAMIN E [Concomitant]
     Active Substance: .ALPHA.-TOCOPHEROL
  7. NORVASC [Concomitant]
     Active Substance: AMLODIPINE BESYLATE
  8. VITAMIN D [Concomitant]
     Active Substance: CHOLECALCIFEROL
  9. CALCIUM [Concomitant]
     Active Substance: CALCIUM
  10. VITAMIN C [Concomitant]
     Active Substance: ASCORBIC ACID

REACTIONS (3)
  - Pneumonia [Recovering/Resolving]
  - Pleural effusion [Recovering/Resolving]
  - Acute respiratory distress syndrome [Recovering/Resolving]

NARRATIVE: CASE EVENT DATE: 2014
